FAERS Safety Report 7595086-X (Version None)
Quarter: 2011Q2

REPORT INFORMATION
  Report Type: 
  Country: None (occurrence: None)
  Receive Date: 20110620
  Receipt Date: 20110315
  Transmission Date: 20111010
  Serious: Yes (Hospitalization)
  Sender: FDA-Public Use
  Company Number: UTC-005719

PATIENT
  Age: 47 Year
  Sex: Female

DRUGS (2)
  1. REVATIO [Concomitant]
  2. TYVASO [Suspect]
     Indication: PULMONARY ARTERIAL HYPERTENSION
     Dosage: 72 MCG (18 MCG, 4 IN 1 D), INHALATION
     Route: 055
     Dates: start: 20101230

REACTIONS (4)
  - CARDIAC DISORDER [None]
  - ANAEMIA [None]
  - RENAL FAILURE CHRONIC [None]
  - SICKLE CELL ANAEMIA [None]
